FAERS Safety Report 6518802-4 (Version None)
Quarter: 2009Q4

REPORT INFORMATION
  Report Type: 
  Country: None (occurrence: None)
  Receive Date: 20091228
  Receipt Date: 20091215
  Transmission Date: 20100525
  Serious: No
  Sender: FDA-Public Use
  Company Number: US-JNJFOC-20091205158

PATIENT
  Age: 40 Year
  Sex: Male

DRUGS (1)
  1. DURAGESIC-100 [Suspect]
     Indication: NEOPLASM MALIGNANT
     Route: 062

REACTIONS (1)
  - DRUG ADMINISTRATION ERROR [None]
